FAERS Safety Report 17049772 (Version 1)
Quarter: 2019Q4

REPORT INFORMATION
  Report Type: Spontaneous
  Country: US (occurrence: US)
  Receive Date: 20191119
  Receipt Date: 20191119
  Transmission Date: 20200122
  Serious: Yes (Life-Threatening, Hospitalization, Other)
  Sender: FDA-Public Use
  Company Number: US-TEVA-2019-US-1138618

PATIENT
  Age: 48 Year
  Sex: Male

DRUGS (5)
  1. DEXMEDETOMIDINE. [Suspect]
     Active Substance: DEXMEDETOMIDINE
     Dosage: REACHED ON POST-OPERATIVE DAY 9 AND CONTINUED FOR 48 HOURS. THEN TITRATED OFF WITHIN ONE HOUR POS...
     Route: 050
  2. DEXMEDETOMIDINE. [Suspect]
     Active Substance: DEXMEDETOMIDINE
     Indication: SEDATIVE THERAPY
     Dosage: STARTED RECEIVING ON POST-OPERATIVE DAY 4 (INITIAL DOSAGE NOT STATED)
     Route: 050
  3. LABETALOL [Suspect]
     Active Substance: LABETALOL\LABETALOL HYDROCHLORIDE
     Indication: HYPERTENSIVE CRISIS
     Dosage: INFUSION
     Route: 065
  4. METOPROLOL. [Suspect]
     Active Substance: METOPROLOL
     Indication: HYPERTENSIVE CRISIS
     Route: 065
  5. NICARDIPINE [Suspect]
     Active Substance: NICARDIPINE
     Indication: HYPERTENSIVE CRISIS
     Dosage: INFUSION
     Route: 046

REACTIONS (5)
  - Drug ineffective [Unknown]
  - Hypertensive crisis [Recovered/Resolved]
  - Tachycardia [Recovered/Resolved]
  - Agitation [Unknown]
  - Drug withdrawal syndrome [Recovered/Resolved]
